FAERS Safety Report 9241892 (Version 3)
Quarter: 2013Q4

REPORT INFORMATION
  Report Type: Spontaneous
  Country: US (occurrence: US)
  Receive Date: 20130419
  Receipt Date: 20131024
  Transmission Date: 20140711
  Serious: Yes (Death, Hospitalization, Other)
  Sender: FDA-Public Use
  Company Number: US-009507513-1304USA008440

PATIENT
  Sex: Male
  Weight: 80.73 kg

DRUGS (2)
  1. JANUVIA [Suspect]
     Indication: TYPE 2 DIABETES MELLITUS
     Dosage: 100 MG, QD
     Route: 048
     Dates: start: 201006, end: 201206
  2. METFORMIN [Concomitant]
     Indication: DIABETES MELLITUS

REACTIONS (51)
  - Pancreatic carcinoma [Fatal]
  - Hypertension [Unknown]
  - Benign prostatic hyperplasia [Unknown]
  - Anaemia [Unknown]
  - Hyperlipidaemia [Unknown]
  - Osteoarthritis [Unknown]
  - Stent placement [Unknown]
  - Neoplasm prostate [Unknown]
  - Coronary artery disease [Unknown]
  - Cholecystitis infective [Recovering/Resolving]
  - Cholecystectomy [Unknown]
  - Gastroenterostomy [Recovering/Resolving]
  - Pneumobilia [Unknown]
  - Ascites [Unknown]
  - Central venous catheterisation [Unknown]
  - Transfusion [Unknown]
  - Loss of consciousness [Unknown]
  - Pneumonia [Unknown]
  - Cardiovascular disorder [Unknown]
  - Intestinal adhesion lysis [Recovering/Resolving]
  - Exploratory operation [Recovering/Resolving]
  - Device issue [Unknown]
  - Hypoglycaemia [Recovered/Resolved]
  - Obstruction gastric [Recovering/Resolving]
  - Deep vein thrombosis [Unknown]
  - Pleural effusion [Unknown]
  - Pneumobilia [Recovering/Resolving]
  - Paracentesis [Recovering/Resolving]
  - Aspiration pleural cavity [Recovering/Resolving]
  - Cardiac disorder [Unknown]
  - Pancreatic sphincterotomy [Unknown]
  - Diarrhoea [Recovered/Resolved]
  - Constipation [Recovered/Resolved]
  - Pancreatitis acute [Unknown]
  - Cardiac failure chronic [Unknown]
  - Radiotherapy [Unknown]
  - Prostatomegaly [Unknown]
  - Fall [Unknown]
  - Weight decreased [Recovering/Resolving]
  - Photocoagulation [Unknown]
  - Diabetic retinopathy [Unknown]
  - Cataract [Unknown]
  - Hypotension [Unknown]
  - Cataract operation [Unknown]
  - Treatment noncompliance [Unknown]
  - Hepatic artery thrombosis [Unknown]
  - Ascites [Not Recovered/Not Resolved]
  - Pleural effusion [Unknown]
  - Hypercholesterolaemia [Unknown]
  - Arthralgia [Unknown]
  - Arthralgia [Unknown]
